FAERS Safety Report 5871745-1 (Version None)
Quarter: 2008Q3

REPORT INFORMATION
  Report Type: 
  Country: None (occurrence: None)
  Receive Date: 20080904
  Receipt Date: 20080904
  Transmission Date: 20090109
  Serious: Yes (Life-Threatening, Other)
  Sender: FDA-Public Use
  Company Number: None

PATIENT
  Age: 57 Year
  Sex: Male
  Weight: 133.8111 kg

DRUGS (2)
  1. LYRICA [Suspect]
     Indication: MULTIPLE INJURIES
     Dosage: 1 CAPSUL Q DAY PO  (DURATION: THE LAST 6 MONTHS)
     Route: 048
  2. LYRICA [Suspect]
     Indication: PAIN
     Dosage: 1 CAPSUL Q DAY PO  (DURATION: THE LAST 6 MONTHS)
     Route: 048

REACTIONS (8)
  - ACTIVITIES OF DAILY LIVING IMPAIRED [None]
  - APATHY [None]
  - ASTHENIA [None]
  - DEPRESSION [None]
  - FATIGUE [None]
  - FEELING OF DESPAIR [None]
  - LISTLESS [None]
  - MOOD ALTERED [None]
